FAERS Safety Report 5689322-4 (Version None)
Quarter: 2008Q1

REPORT INFORMATION
  Report Type: 
  Country: None (occurrence: None)
  Receive Date: 20080331
  Receipt Date: 20080326
  Transmission Date: 20080703
  Serious: Yes (Death, Life-Threatening, Hospitalization, Other)
  Sender: FDA-Public Use
  Company Number: RS-ABBOTT-08P-303-0444088-00

PATIENT
  Age: 60 Year
  Sex: Male
  Weight: 80 kg

DRUGS (7)
  1. KALETRA [Suspect]
     Indication: HIV INFECTION
     Dosage: 1 CAPS 133,3 MG LOPINAVIR - 33,3 MG RITONAVIR
     Route: 048
     Dates: start: 20070420, end: 20080213
  2. ETOPOSIDE [Concomitant]
     Indication: LUNG NEOPLASM MALIGNANT
     Route: 042
     Dates: start: 20070701, end: 20071101
  3. DEXAMETHASONE TAB [Concomitant]
     Indication: LUNG NEOPLASM MALIGNANT
     Dates: start: 20070701, end: 20071101
  4. FUROSEMIDE [Concomitant]
     Indication: LUNG NEOPLASM MALIGNANT
     Dates: start: 20070701, end: 20071101
  5. SYMPTOMATIC THERAPY [Concomitant]
     Indication: METASTASES TO ADRENALS
     Dates: start: 20071210, end: 20080214
  6. SYMPTOMATIC THERAPY [Concomitant]
     Indication: LUNG CANCER METASTATIC
  7. CISPLATIN [Concomitant]
     Indication: LUNG NEOPLASM MALIGNANT
     Route: 042
     Dates: start: 20070701, end: 20071101

REACTIONS (7)
  - BRAIN CANCER METASTATIC [None]
  - GENERAL PHYSICAL HEALTH DETERIORATION [None]
  - HEMIPLEGIA [None]
  - LOSS OF CONSCIOUSNESS [None]
  - LUNG NEOPLASM MALIGNANT [None]
  - METASTASES TO ADRENALS [None]
  - NEUROENDOCRINE CARCINOMA [None]
